FAERS Safety Report 7430376-2 (Version None)
Quarter: 2011Q2

REPORT INFORMATION
  Report Type: 
  Country: None (occurrence: None)
  Receive Date: 20110421
  Receipt Date: 20101115
  Transmission Date: 20111010
  Serious: No
  Sender: FDA-Public Use
  Company Number: US-ASTRAZENECA-2010SE54393

PATIENT
  Age: 66 Year
  Sex: Female
  Weight: 86.2 kg

DRUGS (8)
  1. TOPROL-XL [Suspect]
     Indication: HYPERTENSION
     Route: 048
     Dates: start: 20050101
  2. LEVOTHYROXINE [Concomitant]
  3. ESTRADIOL [Concomitant]
  4. SIMVASTATIN [Concomitant]
  5. TRIAMTERENE [Concomitant]
  6. FUROSEMIDE [Concomitant]
  7. POTASSIUM CL [Concomitant]
  8. PROMETRIUM [Concomitant]

REACTIONS (2)
  - TENDON RUPTURE [None]
  - WEIGHT INCREASED [None]
